FAERS Safety Report 26142941 (Version 1)
Quarter: 2025Q4

REPORT INFORMATION
  Report Type: Report from Study
  Country: GB (occurrence: GB)
  Receive Date: 20251211
  Receipt Date: 20251211
  Transmission Date: 20260118
  Serious: Yes (Death)
  Sender: CELLTRION
  Company Number: GB-CELLTRION INC.-2024GB018618

PATIENT

DRUGS (1)
  1. INFLIXIMAB-DYYB [Suspect]
     Active Substance: INFLIXIMAB-DYYB
     Indication: Colitis ulcerative
     Dosage: 120 MG PRE FILLED PEN PK2
     Route: 058
     Dates: start: 202307, end: 202512

REACTIONS (3)
  - Death [Fatal]
  - Headache [Recovered/Resolved]
  - Fatigue [Recovered/Resolved]
